FAERS Safety Report 16234728 (Version 1)
Quarter: 2019Q2

REPORT INFORMATION
  Report Type: Spontaneous
  Country: US (occurrence: US)
  Receive Date: 20190320
  Receipt Date: 20190320
  Transmission Date: 20190711
  Serious: Yes (Other)
  Sender: FDA-Public Use
  Company Number: None

PATIENT
  Age: 81 Year
  Sex: Female
  Weight: 55.34 kg

DRUGS (9)
  1. CITROCAL [Concomitant]
  2. FOLIC ACID. [Concomitant]
     Active Substance: FOLIC ACID
  3. QUNOL (COQ10) [Concomitant]
  4. CARVEDILOL. [Concomitant]
     Active Substance: CARVEDILOL
  5. LOVASTATIN. [Concomitant]
     Active Substance: LOVASTATIN
  6. COMPLETE MULTIPLE VITAMIN 50+ WOMEN [Concomitant]
  7. CARDIAC STENT [Concomitant]
  8. PLAVIX [Concomitant]
     Active Substance: CLOPIDOGREL BISULFATE
  9. ATORVASTATIN [Suspect]
     Active Substance: ATORVASTATIN
     Indication: BLOOD CHOLESTEROL INCREASED
     Dosage: ?          QUANTITY:40 MG MILLIGRAM(S);?
     Route: 048
     Dates: start: 20180702, end: 20190115

REACTIONS (7)
  - Diarrhoea [None]
  - Ill-defined disorder [None]
  - Gastrointestinal pain [None]
  - Weight decreased [None]
  - Hepatic enzyme increased [None]
  - Fatigue [None]
  - Haematuria [None]

NARRATIVE: CASE EVENT DATE: 20181207
